FAERS Safety Report 4660441-4 (Version None)
Quarter: 2005Q2

REPORT INFORMATION
  Report Type: 
  Country: None (occurrence: None)
  Receive Date: 20050512
  Receipt Date: 20041015
  Transmission Date: 20051028
  Serious: Yes (Other)
  Sender: FDA-Public Use
  Company Number: SE-GLAXOSMITHKLINE-B0349149A

PATIENT
  Sex: Female

DRUGS (1)
  1. IMIGRAN [Suspect]
     Indication: MIGRAINE
     Dates: start: 20040629, end: 20040630

REACTIONS (8)
  - CEREBRAL INFARCTION [None]
  - DISABILITY [None]
  - HEADACHE [None]
  - PAIN IN EXTREMITY [None]
  - PARESIS [None]
  - READING DISORDER [None]
  - VISUAL DISTURBANCE [None]
  - VISUAL FIELD DEFECT [None]
